FAERS Safety Report 7640302-9 (Version None)
Quarter: 2011Q3

REPORT INFORMATION
  Report Type: 
  Country: None (occurrence: None)
  Receive Date: 20110728
  Receipt Date: 20110721
  Transmission Date: 20111222
  Serious: Yes (Hospitalization, Other)
  Sender: FDA-Public Use
  Company Number: US-BAYER-2010-007112

PATIENT
  Age: 24 Year
  Sex: Female
  Weight: 84 kg

DRUGS (1)
  1. YAZ [Suspect]
     Indication: ORAL CONTRACEPTION
     Dates: start: 20020101, end: 20100101

REACTIONS (9)
  - ANXIETY [None]
  - INJURY [None]
  - BILE DUCT STONE [None]
  - EMOTIONAL DISTRESS [None]
  - CHOLECYSTITIS [None]
  - ASTHENIA [None]
  - GENERAL PHYSICAL HEALTH DETERIORATION [None]
  - DEPRESSION [None]
  - PAIN [None]
